FAERS Safety Report 23703114 (Version 1)
Quarter: 2024Q2

REPORT INFORMATION
  Report Type: Spontaneous
  Country: US (occurrence: US)
  Receive Date: 20240403
  Receipt Date: 20240403
  Transmission Date: 20240716
  Serious: No
  Sender: FDA-Public Use
  Company Number: US-MIMS-BIOLMC-226

PATIENT
  Age: 51 Year
  Sex: Male

DRUGS (1)
  1. APHEXDA [Suspect]
     Active Substance: MOTIXAFORTIDE ACETATE
     Indication: Haematopoietic stem cell mobilisation
     Dosage: UNK, UNK
     Route: 065
     Dates: start: 20231218, end: 20231218

REACTIONS (5)
  - Rash [Recovered/Resolved]
  - Nausea [Recovered/Resolved]
  - Hypertension [Recovered/Resolved]
  - Injection site pain [None]
  - Injection site irritation [Not Recovered/Not Resolved]

NARRATIVE: CASE EVENT DATE: 20231218
